FAERS Safety Report 6968642-7 (Version None)
Quarter: 2010Q3

REPORT INFORMATION
  Report Type: 
  Country: None (occurrence: None)
  Receive Date: 20100907
  Receipt Date: 20100902
  Transmission Date: 20110219
  Serious: Yes (Life-Threatening)
  Sender: FDA-Public Use
  Company Number: JP-JNJFOC-20100901217

PATIENT
  Age: 62 Year
  Sex: Male

DRUGS (3)
  1. FINIBAX [Suspect]
     Indication: SEPSIS
     Route: 041
  2. TARGOCID [Suspect]
     Indication: PRODUCT USED FOR UNKNOWN INDICATION
     Route: 041
  3. VANCOMYCIN HCL [Suspect]
     Indication: PRODUCT USED FOR UNKNOWN INDICATION
     Route: 048

REACTIONS (1)
  - PLATELET COUNT DECREASED [None]
